FAERS Safety Report 13399895 (Version 1)
Quarter: 2017Q2

REPORT INFORMATION
  Report Type: Spontaneous
  Country: US (occurrence: US)
  Receive Date: 20170404
  Receipt Date: 20170404
  Transmission Date: 20170830
  Serious: No
  Sender: FDA-Public Use
  Company Number: None

PATIENT
  Age: 68 Year
  Sex: Male

DRUGS (1)
  1. ENOXAPARIN 40MG/0.4ML SYR [Suspect]
     Active Substance: ENOXAPARIN
     Route: 058
     Dates: start: 20160701, end: 20160714

REACTIONS (3)
  - Injury associated with device [None]
  - Injection site haemorrhage [None]
  - Wrong technique in device usage process [None]

NARRATIVE: CASE EVENT DATE: 20160710
